FAERS Safety Report 6555336-5 (Version None)
Quarter: 2010Q1

REPORT INFORMATION
  Report Type: 
  Country: None (occurrence: None)
  Receive Date: 20100128
  Receipt Date: 20090531
  Transmission Date: 20100710
  Serious: No
  Sender: FDA-Public Use
  Company Number: A0789153A

PATIENT
  Sex: Male

DRUGS (1)
  1. WELLBUTRIN [Suspect]
     Indication: DEPRESSION
     Dosage: 1TAB PER DAY
     Route: 065

REACTIONS (3)
  - DEPRESSIVE SYMPTOM [None]
  - DRUG ADMINISTRATION ERROR [None]
  - DRUG EFFECT DECREASED [None]
